FAERS Safety Report 5858103-0 (Version None)
Quarter: 2008Q3

REPORT INFORMATION
  Report Type: 
  Country: None (occurrence: None)
  Receive Date: 20080822
  Receipt Date: 20080807
  Transmission Date: 20090109
  Serious: Yes (Death, Hospitalization, Other)
  Sender: FDA-Public Use
  Company Number: MEDI-0006212

PATIENT
  Age: 2 Month
  Sex: Male
  Weight: 1.73 kg

DRUGS (12)
  1. SYNAGIS [Suspect]
     Indication: PREMATURE BABY
     Dosage: SEE IMAGE
     Route: 042
     Dates: start: 20070911, end: 20071011
  2. SYNAGIS [Suspect]
     Indication: PREMATURE BABY
     Dosage: SEE IMAGE
     Route: 042
     Dates: start: 20070911
  3. SYNAGIS [Suspect]
     Indication: PREMATURE BABY
     Dosage: SEE IMAGE
     Route: 042
     Dates: start: 20071108
  4. SYNAGIS [Suspect]
     Indication: PREMATURE BABY
     Dosage: SEE IMAGE
     Route: 042
     Dates: start: 20071218
  5. SYNAGIS [Suspect]
     Indication: PREMATURE BABY
     Dosage: SEE IMAGE
     Route: 042
     Dates: start: 20080116
  6. ALVITYL (VITAMINS NOS) [Concomitant]
  7. FERRUMATE [Concomitant]
  8. THEOPHYLLINE [Concomitant]
  9. LEVOTHYROXINE SODIUM [Concomitant]
  10. SPIRONOLACTONE [Concomitant]
  11. FUROSEMIDE (FUROSEMIDE) [Concomitant]
  12. SILDENAFIL CITRATE [Concomitant]

REACTIONS (6)
  - BRONCHIOLITIS [None]
  - BRONCHOPULMONARY DYSPLASIA [None]
  - PNEUMOTHORAX [None]
  - PULMONARY HYPERTENSION [None]
  - RESPIRATORY DISTRESS [None]
  - RESPIRATORY SYNCYTIAL VIRUS BRONCHIOLITIS [None]
